FAERS Safety Report 4892058-0 (Version None)
Quarter: 2006Q1

REPORT INFORMATION
  Report Type: 
  Country: None (occurrence: None)
  Receive Date: 20060123
  Receipt Date: 20060112
  Transmission Date: 20060701
  Serious: Yes (Hospitalization)
  Sender: FDA-Public Use
  Company Number: 2006006525

PATIENT
  Age: 75 Year
  Sex: Male

DRUGS (1)
  1. RANITIDINE [Suspect]
     Indication: ABDOMINAL PAIN UPPER
     Dosage: 150 MG TWICE DAILY, ORAL
     Route: 048

REACTIONS (5)
  - CHOLESTASIS [None]
  - EXCORIATION [None]
  - HEPATIC STEATOSIS [None]
  - HEPATOMEGALY [None]
  - THROMBOSIS [None]
